FAERS Safety Report 21654510 (Version 5)
Quarter: 2023Q2

REPORT INFORMATION
  Report Type: Report from Study
  Country: US (occurrence: US)
  Receive Date: 20221129
  Receipt Date: 20230627
  Transmission Date: 20230721
  Serious: Yes (Other)
  Sender: FDA-Public Use
  Company Number: US-ABBVIE-4183756

PATIENT
  Age: 95 Year
  Sex: Male

DRUGS (2)
  1. SKYRIZI [Suspect]
     Active Substance: RISANKIZUMAB-RZAA
     Indication: Psoriasis
     Dosage: FORM STRENGTH : 150 MILLIGRAM
     Route: 058
     Dates: start: 20221019, end: 202210
  2. SKYRIZI [Suspect]
     Active Substance: RISANKIZUMAB-RZAA
     Indication: Psoriatic arthropathy
     Dosage: FORM STRENGTH : 150  MILLIGRAM
     Route: 058
     Dates: start: 20221026

REACTIONS (8)
  - Cerebrovascular accident [Recovered/Resolved]
  - Dehydration [Recovered/Resolved]
  - Transient ischaemic attack [Recovered/Resolved]
  - Diarrhoea [Unknown]
  - Gastrointestinal infection [Unknown]
  - Diarrhoea [Recovered/Resolved]
  - Atrial fibrillation [Recovered/Resolved]
  - White blood cell count increased [Unknown]

NARRATIVE: CASE EVENT DATE: 20221026
